FAERS Safety Report 5526660-X (Version None)
Quarter: 2007Q4

REPORT INFORMATION
  Report Type: 
  Country: None (occurrence: None)
  Receive Date: 20071119
  Receipt Date: 20070315
  Transmission Date: 20080405
  Serious: Yes (Other)
  Sender: FDA-Public Use
  Company Number: 2006BH014788

PATIENT
  Age: 59 Year
  Sex: Male
  Weight: 102.0593 kg

DRUGS (15)
  1. PHENERGAN HCL [Suspect]
     Indication: SEDATION
     Dosage: 25 MG;ONCE;IV ; 25 MG;ONCE;IV
     Route: 042
     Dates: start: 20061017, end: 20061017
  2. PHENERGAN HCL [Suspect]
     Indication: SEDATION
     Dosage: 25 MG;ONCE;IV ; 25 MG;ONCE;IV
     Route: 042
     Dates: start: 20061018, end: 20061018
  3. NITROGLYCERIN [Concomitant]
  4. MORPHINE SULFATE [Concomitant]
  5. CLONIDINE [Concomitant]
  6. ATACAND [Concomitant]
  7. HYDROCHLOROTHIAZIDE [Concomitant]
  8. TRAMADOL HCL [Concomitant]
  9. TESTOSTERONE [Concomitant]
  10. VITAMIN CAP [Concomitant]
  11. DEMEROL [Concomitant]
  12. HYDROMORPHONE HCL [Concomitant]
  13. COUMADIN [Concomitant]
  14. THYROID TAB [Concomitant]
  15. ARIMIDEX [Concomitant]

REACTIONS (5)
  - BURNING SENSATION [None]
  - ERYTHEMA [None]
  - FEELING COLD [None]
  - PAIN [None]
  - THROMBOSIS [None]
